FAERS Safety Report 18523503 (Version 2)
Quarter: 2020Q4

REPORT INFORMATION
  Report Type: Report from Study
  Country: US (occurrence: US)
  Receive Date: 20201119
  Receipt Date: 20201214
  Transmission Date: 20210114
  Serious: Yes (Other)
  Sender: FDA-Public Use
  Company Number: US-BAYER-2020-245721

PATIENT
  Age: 59 Year
  Sex: Male
  Weight: 85.26 kg

DRUGS (11)
  1. IODINE. [Concomitant]
     Active Substance: IODINE
     Dosage: UNK
  2. ESOMEPRAZOLE;SODIUM BICARBONATE [Concomitant]
     Dosage: UNK
  3. ALPRAZOLAM. [Concomitant]
     Active Substance: ALPRAZOLAM
     Dosage: UNK
  4. VITAMIN D [VITAMIN D NOS] [Concomitant]
     Active Substance: VITAMIN D NOS
     Dosage: UNK
  5. RAMIPRIL. [Concomitant]
     Active Substance: RAMIPRIL
     Dosage: UNK
  6. METOPROLOL SUCCINATE. [Concomitant]
     Active Substance: METOPROLOL SUCCINATE
     Dosage: UNK
  7. STOOL SOFTENER (DOCUSATE) [Concomitant]
     Active Substance: DOCUSATE
     Dosage: UNK
  8. YUNGJIN PAROXETINE CR [Concomitant]
     Dosage: UNK
  9. STIVARGA [Suspect]
     Active Substance: REGORAFENIB
     Indication: COLON CANCER
     Dosage: DAILY DOSE 120 MG FOR 21 OUT OF 28 DAYS
     Route: 048
     Dates: start: 202010
  10. OMEGA 3D [Concomitant]
     Dosage: UNK
  11. ROSUVASTATIN CALCIUM. [Concomitant]
     Active Substance: ROSUVASTATIN CALCIUM
     Dosage: UNK

REACTIONS (6)
  - Abdominal discomfort [Not Recovered/Not Resolved]
  - Head discomfort [Unknown]
  - Rhinorrhoea [Unknown]
  - Neuropathy peripheral [Unknown]
  - Onychoclasis [Unknown]
  - Off label use [None]

NARRATIVE: CASE EVENT DATE: 2020
